FAERS Safety Report 5122962-X (Version None)
Quarter: 2006Q4

REPORT INFORMATION
  Report Type: 
  Country: None (occurrence: None)
  Receive Date: 20061005
  Receipt Date: 20060920
  Transmission Date: 20070319
  Serious: Yes (Hospitalization)
  Sender: FDA-Public Use
  Company Number: 2006S1006467

PATIENT
  Age: 75 Year
  Sex: Female
  Weight: 79.3795 kg

DRUGS (12)
  1. FENTANYL TRANSDERMAL SYSTEM [Suspect]
     Indication: ARTHRITIS
     Dosage: 75 MG/HR;Q3D;TDER
     Route: 062
     Dates: start: 20060501
  2. FENTANYL TRANSDERMAL SYSTEM [Suspect]
     Indication: PAIN
     Dosage: 75 MG/HR;Q3D;TDER
     Route: 062
     Dates: start: 20060501
  3. DIGOXIN [Concomitant]
  4. ASPIRIN [Concomitant]
  5. CELEBREX [Concomitant]
  6. NEURONTIN [Concomitant]
  7. CLONAZEPAM [Concomitant]
  8. HUMULIN N [Concomitant]
  9. SENOKOT [Concomitant]
  10. PERCOCET [Concomitant]
  11. REGULAR INSULIN [Concomitant]
  12. HUMULIN R [Concomitant]

REACTIONS (1)
  - INADEQUATE ANALGESIA [None]
